FAERS Safety Report 18097876 (Version 1)
Quarter: 2020Q3

REPORT INFORMATION
  Report Type: Spontaneous
  Country: TH (occurrence: TH)
  Receive Date: 20200731
  Receipt Date: 20200731
  Transmission Date: 20201103
  Serious: Yes (Hospitalization, Other)
  Sender: FDA-Public Use
  Company Number: TH-ACCORD-193502

PATIENT
  Age: 57 Year
  Sex: Male

DRUGS (6)
  1. SERTRALINE [Suspect]
     Active Substance: SERTRALINE HYDROCHLORIDE
     Indication: MAJOR DEPRESSION
  2. SODIUM CHLORIDE. [Concomitant]
     Active Substance: SODIUM CHLORIDE
     Indication: BOWEL PREPARATION
     Dosage: ENEMA 20?40 ML PER TIMES, THREE TIMES A WEEK
  3. OXYBUTYNIN. [Concomitant]
     Active Substance: OXYBUTYNIN CHLORIDE
  4. SODIUM CHLORIDE. [Concomitant]
     Active Substance: SODIUM CHLORIDE
     Indication: BOWEL PREPARATION
     Dosage: ENEMA 20?40 ML PER TIMES, THREE TIMES A WEEK
  5. LORAZEPAM. [Concomitant]
     Active Substance: LORAZEPAM
     Indication: MAJOR DEPRESSION
     Dosage: BEFORE BEDTIME
  6. BACLOFEN. [Concomitant]
     Active Substance: BACLOFEN

REACTIONS (6)
  - Hyponatraemia [Recovered/Resolved]
  - Intestinal pseudo-obstruction [Unknown]
  - Peritonitis [Unknown]
  - Volvulus [Unknown]
  - Large intestinal obstruction [Unknown]
  - Hypokalaemia [Unknown]
